FAERS Safety Report 14060961 (Version 1)
Quarter: 2017Q4

REPORT INFORMATION
  Report Type: Spontaneous
  Country: US (occurrence: US)
  Receive Date: 20171007
  Receipt Date: 20171007
  Transmission Date: 20180321
  Serious: No
  Sender: FDA-Public Use
  Company Number: US-009507513-1710USA002907

PATIENT
  Age: 35 Year
  Sex: Female

DRUGS (1)
  1. NEXPLANON [Suspect]
     Active Substance: ETONOGESTREL
     Indication: CONTRACEPTION
     Dosage: 1 IMPLANT, EVERY 3 YEARS (REPORTED AS EVERY 5 YEARS)
     Route: 058
     Dates: start: 20161011, end: 201710

REACTIONS (1)
  - Menstruation irregular [Unknown]

NARRATIVE: CASE EVENT DATE: 20171004
